FAERS Safety Report 7227002-4 (Version None)
Quarter: 2011Q1

REPORT INFORMATION
  Report Type: 
  Country: None (occurrence: None)
  Receive Date: 20110111
  Receipt Date: 20110111
  Transmission Date: 20110831
  Serious: No
  Sender: FDA-Public Use
  Company Number: None

PATIENT
  Age: 53 Year
  Sex: Male
  Weight: 81.6475 kg

DRUGS (1)
  1. DARVOCET [Suspect]
     Indication: RHEUMATOID ARTHRITIS

REACTIONS (3)
  - PALPITATIONS [None]
  - ARRHYTHMIA [None]
  - DIZZINESS [None]
